FAERS Safety Report 8537273-X (Version None)
Quarter: 2012Q3

REPORT INFORMATION
  Report Type: 
  Country: None (occurrence: None)
  Receive Date: 20120725
  Receipt Date: 20120628
  Transmission Date: 20120928
  Serious: No
  Sender: FDA-Public Use
  Company Number: US-ASTRAZENECA-2012SE44088

PATIENT
  Sex: Male

DRUGS (1)
  1. SEROQUEL [Suspect]
     Indication: POST-TRAUMATIC STRESS DISORDER
     Dosage: TITRATING DOSE
     Route: 048
     Dates: start: 20120101, end: 20120101

REACTIONS (3)
  - RESTLESS LEGS SYNDROME [None]
  - AKATHISIA [None]
  - OFF LABEL USE [None]
